FAERS Safety Report 17024394 (Version 3)
Quarter: 2020Q1

REPORT INFORMATION
  Report Type: Report from Study
  Country: CH (occurrence: CH)
  Receive Date: 20191113
  Receipt Date: 20200205
  Transmission Date: 20200409
  Serious: No
  Sender: FDA-Public Use
  Company Number: CH-BEH-2019100463

PATIENT
  Age: 57 Year
  Sex: Male

DRUGS (9)
  1. HIZENTRA [Suspect]
     Active Substance: HUMAN IMMUNOGLOBULIN G
     Indication: MULTIFOCAL MOTOR NEUROPATHY
     Dosage: 75 ML, QW
     Route: 058
     Dates: start: 20190308
  2. HIZENTRA [Suspect]
     Active Substance: HUMAN IMMUNOGLOBULIN G
     Dosage: UNK
     Route: 058
  3. HIZENTRA [Suspect]
     Active Substance: HUMAN IMMUNOGLOBULIN G
     Dosage: 75 ML, TOT
     Route: 065
     Dates: start: 20190329, end: 20190329
  4. HIZENTRA [Suspect]
     Active Substance: HUMAN IMMUNOGLOBULIN G
     Dosage: 75 ML, TOT
     Route: 065
     Dates: start: 20190321, end: 20190321
  5. HIZENTRA [Suspect]
     Active Substance: HUMAN IMMUNOGLOBULIN G
     Dosage: 75 ML, UNK
     Route: 065
     Dates: start: 20190315, end: 20190315
  6. HIZENTRA [Suspect]
     Active Substance: HUMAN IMMUNOGLOBULIN G
     Dosage: 75 MILLILITER, TOT
     Route: 065
     Dates: start: 20190830, end: 20190830
  7. HIZENTRA [Suspect]
     Active Substance: HUMAN IMMUNOGLOBULIN G
     Dosage: UNK
     Route: 058
  8. HIZENTRA [Suspect]
     Active Substance: HUMAN IMMUNOGLOBULIN G
     Dosage: UNK
     Route: 058
  9. HIZENTRA [Suspect]
     Active Substance: HUMAN IMMUNOGLOBULIN G
     Dosage: 75 ML, QW, 3 SITES OF INJ.
     Route: 065

REACTIONS (17)
  - Injection site mass [Recovered/Resolved]
  - Injection site paraesthesia [Unknown]
  - Injection site erythema [Unknown]
  - Hypotonia [Recovered/Resolved]
  - Injection site erythema [Unknown]
  - Administration site mass [Unknown]
  - Injection site extravasation [Unknown]
  - Injection site mass [Recovered/Resolved]
  - Administration site pain [Unknown]
  - Injection site nodule [Recovered/Resolved]
  - Injection site erythema [Unknown]
  - Injection site mass [Unknown]
  - Injection site haematoma [Unknown]
  - Erythema [Unknown]
  - Product use in unapproved indication [Unknown]
  - Injection site mass [Recovered/Resolved]
  - No adverse event [Unknown]

NARRATIVE: CASE EVENT DATE: 201903
